FAERS Safety Report 9782469 (Version 1)
Quarter: 2013Q4

REPORT INFORMATION
  Report Type: Spontaneous
  Country: US (occurrence: US)
  Receive Date: 20131226
  Receipt Date: 20131226
  Transmission Date: 20140711
  Serious: No
  Sender: FDA-Public Use
  Company Number: US-JNJFOC-20131213219

PATIENT
  Age: 74 Year
  Sex: Female

DRUGS (1)
  1. DURAGESIC [Suspect]
     Indication: ANALGESIC THERAPY
     Route: 062

REACTIONS (4)
  - Poor quality drug administered [Not Recovered/Not Resolved]
  - Product quality issue [Unknown]
  - Incorrect dose administered [Not Recovered/Not Resolved]
  - Product quality issue [Unknown]
